FAERS Safety Report 8842040 (Version 2)
Quarter: 2013Q2

REPORT INFORMATION
  Report Type: Spontaneous
  Country: IT (occurrence: IT)
  Receive Date: 20121016
  Receipt Date: 20130503
  Transmission Date: 20140414
  Serious: Yes (Hospitalization)
  Sender: FDA-Public Use
  Company Number: IT-SANOFI-AVENTIS-2012SA074767

PATIENT
  Age: 74 Year
  Sex: Male

DRUGS (9)
  1. LANTUS SOLOSTAR [Suspect]
     Indication: DIABETES MELLITUS
     Dosage: PRE-FILLED SYRINGES
     Route: 058
     Dates: start: 20120301, end: 20120823
  2. SOLOSTAR [Suspect]
     Indication: DEVICE THERAPY
     Dates: start: 20120301, end: 20120823
  3. MIRTAZAPINE [Concomitant]
     Route: 048
  4. COUMADIN [Concomitant]
     Route: 048
  5. HUMULIN R [Concomitant]
     Indication: DIABETES MELLITUS
  6. CARDICOR [Concomitant]
     Dosage: 100IU/ML CARTRIDGES
     Route: 048
  7. HUMALOG MIX [Concomitant]
     Indication: DIABETES MELLITUS
     Dosage: 100IU/ML SUSPENSION FOR INJECTION CRATRIDGES
     Route: 058
  8. CARDIRENE [Concomitant]
     Route: 048
  9. LANSOX [Concomitant]
     Route: 048

REACTIONS (3)
  - Hyperkalaemia [Recovered/Resolved]
  - Skin ulcer [Recovered/Resolved]
  - Hypoglycaemia [Recovered/Resolved]
